FAERS Safety Report 9017172 (Version 1)
Quarter: 2013Q1

REPORT INFORMATION
  Report Type: Spontaneous
  Country: US (occurrence: US)
  Receive Date: 20130117
  Receipt Date: 20130117
  Transmission Date: 20140127
  Serious: Yes (Hospitalization)
  Sender: FDA-Public Use
  Company Number: US-BAYER-2013-004557

PATIENT
  Age: 17 Year
  Sex: Female
  Weight: 48.8 kg

DRUGS (15)
  1. YAZ [Suspect]
     Indication: CONTRACEPTION
  2. LORAZEPAM [Concomitant]
     Indication: ANXIETY
     Dosage: 2 MG, UNK
     Route: 048
  3. VERSED [Concomitant]
     Indication: SEDATION
  4. FENTANYL [Concomitant]
     Indication: SEDATION
  5. FERROUS GLUCONATE [Concomitant]
     Indication: ANAEMIA
     Dosage: 300 MG, BID
  6. COLACE [Concomitant]
     Dosage: 100 MG, BID
  7. ACETAMINOPHEN [Concomitant]
  8. IBUPROFEN [Concomitant]
  9. MORPHINE [Concomitant]
  10. ZOFRAN [Concomitant]
  11. CYANOCOBALAMIN [Concomitant]
     Indication: VITAMIN B12 DEFICIENCY
     Dosage: 1000 IU, SQ DAILY [TIMES] 3, THEN QOD ( EVERY OTHER DAY) [TIMES] 2 WKS ( WEEKS)
  12. IRON SULFATE [Concomitant]
     Indication: ANAEMIA
  13. NORCO [Concomitant]
     Dosage: 5/325 P.R.N.
  14. VITAMIN B COMPLEX [Concomitant]
     Dosage: EVERY DAY
  15. OMEPRAZOLE [Concomitant]

REACTIONS (4)
  - Pelvic venous thrombosis [Recovered/Resolved]
  - Deep vein thrombosis [Recovered/Resolved]
  - Vena cava thrombosis [Recovered/Resolved]
  - Pulmonary embolism [None]
